FAERS Safety Report 23177597 (Version 1)
Quarter: 2023Q4

REPORT INFORMATION
  Report Type: Spontaneous
  Country: IN (occurrence: IN)
  Receive Date: 20231113
  Receipt Date: 20231113
  Transmission Date: 20240110
  Serious: Yes (Hospitalization, Other)
  Sender: FDA-Public Use
  Company Number: IN-FreseniusKabi-FK202318211

PATIENT
  Age: 49 Year
  Sex: Male

DRUGS (4)
  1. GEMCITABINE [Suspect]
     Active Substance: GEMCITABINE
     Indication: Pancreatic carcinoma
     Dosage: (ON DAYS 1, 8, AND 15 OF A 28-DAY CYCLE)?CUMULATIVE DOSE OF 21,000 MG OVER A PERIOD OF 4 MONTHS
  2. GEMCITABINE [Suspect]
     Active Substance: GEMCITABINE
     Indication: Metastases to liver
     Dosage: 21,000 MG OF GEMCITABINE OVER A PERIOD OF 4 MONTHS
  3. PACLITAXEL [Concomitant]
     Active Substance: PACLITAXEL
     Indication: Pancreatic carcinoma
     Dosage: ON DAYS 1, 8, AND 15 OF A 28-DAY CYCLE
  4. PACLITAXEL [Concomitant]
     Active Substance: PACLITAXEL
     Indication: Metastases to liver

REACTIONS (1)
  - Renal-limited thrombotic microangiopathy [Unknown]
